FAERS Safety Report 8583840-7 (Version None)
Quarter: 2012Q3

REPORT INFORMATION
  Report Type: 
  Country: None (occurrence: None)
  Receive Date: 20120810
  Receipt Date: 20120731
  Transmission Date: 20120928
  Serious: Yes (Hospitalization, Disabling, Other)
  Sender: FDA-Public Use
  Company Number: US-009507513-1201USA02561

PATIENT

DRUGS (9)
  1. FOSAMAX [Suspect]
     Dosage: 70 MG, UNK
     Route: 048
     Dates: start: 20100113, end: 20100313
  2. FOSAMAX PLUS D [Suspect]
     Indication: OSTEOPENIA
     Dosage: 70 MG, UNK
     Route: 048
     Dates: start: 20060701, end: 20100301
  3. SINGULAIR [Concomitant]
  4. DIDRONEL [Concomitant]
     Indication: OSTEOPENIA
     Dosage: 200 MG, UNK
     Route: 048
     Dates: start: 19970811, end: 19980904
  5. FOSAMAX [Suspect]
     Indication: OSTEOPOROSIS
  6. PREDNISONE TAB [Concomitant]
     Indication: ASTHMA
     Dosage: 40 MG, QD
     Dates: start: 19800101
  7. FORTEO [Concomitant]
     Indication: OSTEOPENIA
     Dosage: 20 MG, UNK
     Route: 051
     Dates: start: 20040707, end: 20061016
  8. FOSAMAX [Suspect]
     Indication: OSTEOPENIA
     Dosage: 70 MG, UNK
     Route: 048
     Dates: start: 19980904, end: 20041110
  9. CALCIUM (UNSPECIFIED) (+) VITAMIN D (UNSPECIFIED) [Concomitant]
     Indication: OSTEOPOROSIS
     Dosage: UNK
     Dates: start: 20010101

REACTIONS (34)
  - BLOOD CHOLESTEROL INCREASED [None]
  - PERIODONTAL OPERATION [None]
  - SKIN DISORDER [None]
  - WOUND [None]
  - OSTEOARTHRITIS [None]
  - DEPRESSION [None]
  - LUNG NEOPLASM [None]
  - STRESS FRACTURE [None]
  - INGUINAL HERNIA [None]
  - SPINAL FRACTURE [None]
  - SINGLE FUNCTIONAL KIDNEY [None]
  - SWELLING [None]
  - OVARIAN CYST [None]
  - AORTIC ARTERIOSCLEROSIS [None]
  - BACK PAIN [None]
  - FOOT FRACTURE [None]
  - HYPERTENSION [None]
  - SCOLIOSIS [None]
  - UTERINE POLYP [None]
  - ILIAC ARTERY THROMBOSIS [None]
  - ENDOMETRIAL ATROPHY [None]
  - SPINAL OSTEOARTHRITIS [None]
  - PUBIS FRACTURE [None]
  - MULTI-ORGAN FAILURE [None]
  - PAIN [None]
  - LOW TURNOVER OSTEOPATHY [None]
  - FEMUR FRACTURE [None]
  - ANXIETY [None]
  - RESPIRATORY DISTRESS [None]
  - PAIN IN EXTREMITY [None]
  - CUSHINGOID [None]
  - ARTHRALGIA [None]
  - GASTROOESOPHAGEAL REFLUX DISEASE [None]
  - CHRONIC OBSTRUCTIVE PULMONARY DISEASE [None]
